FAERS Safety Report 10374552 (Version 2)
Quarter: 2014Q3

REPORT INFORMATION
  Report Type: Spontaneous
  Country: US (occurrence: US)
  Receive Date: 20140811
  Receipt Date: 20140914
  Transmission Date: 20150326
  Serious: No
  Sender: FDA-Public Use
  Company Number: US-009507513-1408USA001453

PATIENT
  Age: 19 Year
  Sex: Female
  Weight: 51.7 kg

DRUGS (3)
  1. NEXPLANON [Suspect]
     Active Substance: ETONOGESTREL
     Indication: CONTRACEPTION
     Dosage: 68 MG, UNK
     Route: 059
     Dates: start: 20130708
  2. ESTRADIOL. [Concomitant]
     Active Substance: ESTRADIOL
     Indication: OESTROGEN THERAPY
     Dosage: UNK
     Route: 048
  3. NEXPLANON [Suspect]
     Active Substance: ETONOGESTREL
     Indication: UTERINE HAEMORRHAGE

REACTIONS (7)
  - Uterine haemorrhage [Recovered/Resolved]
  - Medication error [Unknown]
  - Endometrial disorder [Recovered/Resolved]
  - Metrorrhagia [Recovered/Resolved]
  - Muscle spasms [Unknown]
  - Drug ineffective [Recovered/Resolved]
  - Uterine dilation and curettage [Recovered/Resolved]

NARRATIVE: CASE EVENT DATE: 20140708
